FAERS Safety Report 10642536 (Version 1)
Quarter: 2014Q4

REPORT INFORMATION
  Report Type: Spontaneous
  Country: US (occurrence: None)
  Receive Date: 20141208
  Receipt Date: 20141208
  Transmission Date: 20150529
  Serious: Yes (Life-Threatening, Hospitalization)
  Sender: FDA-Public Use
  Company Number: None

PATIENT
  Age: 7 Year
  Sex: Male

DRUGS (1)
  1. BACLOFEN. [Suspect]
     Active Substance: BACLOFEN

REACTIONS (16)
  - Oxygen saturation decreased [None]
  - Muscle tightness [None]
  - Hyperhidrosis [None]
  - Hypotension [None]
  - Device infusion issue [None]
  - Somnolence [None]
  - Heart rate decreased [None]
  - Respiratory arrest [None]
  - Agitation [None]
  - Drug withdrawal syndrome [None]
  - Insomnia [None]
  - Unresponsive to stimuli [None]
  - Seizure [None]
  - Body temperature decreased [None]
  - Heart rate increased [None]
  - Accidental overdose [None]

NARRATIVE: CASE EVENT DATE: 20140909
